FAERS Safety Report 5987608-7 (Version None)
Quarter: 2008Q4

REPORT INFORMATION
  Report Type: 
  Country: None (occurrence: None)
  Receive Date: 20081209
  Receipt Date: 20081205
  Transmission Date: 20090506
  Serious: Yes (Death, Other)
  Sender: FDA-Public Use
  Company Number: FR-WYE-G02661308

PATIENT
  Sex: Male
  Weight: 75 kg

DRUGS (5)
  1. GEMTUZUMAB OZOGAMICIN [Suspect]
     Dosage: 55 MG TOTAL DAILY
     Route: 042
     Dates: start: 20081017, end: 20081023
  2. DAUNORUBICIN [Suspect]
     Dosage: 115 MG TOTAL DAILY
     Route: 042
     Dates: start: 20081017, end: 20081019
  3. DAUNORUBICIN [Suspect]
     Dosage: 137 MG TOTAL DAILY
     Route: 042
     Dates: start: 20081103, end: 20081104
  4. CYTARABINE [Suspect]
     Dosage: 380 MG TOTAL DAILY
     Route: 042
     Dates: start: 20081017, end: 20081023
  5. CYTARABINE [Suspect]
     Dosage: 380 MG TOTAL DAILY
     Route: 042
     Dates: start: 20081103, end: 20081105

REACTIONS (5)
  - BALANCE DISORDER [None]
  - CEREBELLAR HAEMATOMA [None]
  - COMA [None]
  - DYSARTHRIA [None]
  - FALL [None]
